FAERS Safety Report 8045202 (Version 11)
Quarter: 2014Q4

REPORT INFORMATION
  Report Type: Spontaneous
  Country: US (occurrence: US)
  Receive Date: 20110720
  Receipt Date: 20141023
  Transmission Date: 20150529
  Serious: Yes (Hospitalization, Congenital Anomaly, Other)
  Sender: FDA-Public Use
  Company Number: US-PFIZER INC-2011158560

PATIENT
  Sex: Female
  Weight: 3.5 kg

DRUGS (7)
  1. EFFEXOR XR [Suspect]
     Active Substance: VENLAFAXINE HYDROCHLORIDE
     Indication: ANXIETY
     Dosage: 37.5 MG, 1X/DAY
     Route: 064
     Dates: start: 2005, end: 2005
  2. DIGOXIN. [Concomitant]
     Active Substance: DIGOXIN
     Dosage: UNK
     Route: 064
     Dates: start: 20060209
  3. KEFLEX [Concomitant]
     Active Substance: CEPHALEXIN
     Dosage: UNK
     Route: 064
     Dates: start: 200509
  4. DURICEF [Concomitant]
     Active Substance: CEFADROXIL
     Dosage: 500 MG, 2X/DAY
     Route: 064
     Dates: start: 20050903
  5. PRENATAL VITAMINS [Concomitant]
     Active Substance: VITAMINS
     Dosage: UNK
     Route: 064
     Dates: start: 20050711
  6. EFFEXOR [Suspect]
     Active Substance: VENLAFAXINE HYDROCHLORIDE
     Indication: ANXIETY
     Dosage: 37.5 MG, 2X/DAY
     Route: 064
     Dates: start: 20050301
  7. EFFEXOR XR [Suspect]
     Active Substance: VENLAFAXINE HYDROCHLORIDE
     Dosage: 75 MG, 1X/DAY
     Route: 064
     Dates: start: 20050315

REACTIONS (20)
  - Hyperdynamic left ventricle [Unknown]
  - Congenital anomaly [Unknown]
  - Gastrooesophageal reflux disease [Unknown]
  - Cardiac disorder [Unknown]
  - Coarctation of the aorta [Recovered/Resolved]
  - Tricuspid valve incompetence [Unknown]
  - Macrocephaly [Unknown]
  - Right atrial dilatation [Unknown]
  - Maternal exposure timing unspecified [Unknown]
  - Patent ductus arteriosus [Unknown]
  - Supraventricular tachycardia [Not Recovered/Not Resolved]
  - Pericardial effusion [Unknown]
  - Left ventricular hypertrophy [Unknown]
  - Cardiomyopathy [Unknown]
  - Asthma [Unknown]
  - Atrial septal defect [Unknown]
  - Congenital pulmonary valve disorder [Unknown]
  - Dilatation ventricular [Unknown]
  - Atrioventricular block first degree [Unknown]
  - Weight decreased [Unknown]

NARRATIVE: CASE EVENT DATE: 2006
